APPROVED DRUG PRODUCT: ACTIN-N
Active Ingredient: NITROFURAZONE
Strength: 0.2%
Dosage Form/Route: DRESSING;TOPICAL
Application: N017343 | Product #001
Applicant: SHERWOOD MEDICAL CO
Approved: Approved Prior to Jan 1, 1982 | RLD: No | RS: No | Type: DISCN